FAERS Safety Report 23471963 (Version 1)
Quarter: 2024Q1

REPORT INFORMATION
  Report Type: Spontaneous
  Country: US (occurrence: None)
  Receive Date: 20240202
  Receipt Date: 20240202
  Transmission Date: 20240409
  Serious: Yes (Life-Threatening)
  Sender: FDA-Public Use
  Company Number: None

PATIENT
  Age: 15 Year
  Sex: Male
  Weight: 59.4 kg

DRUGS (1)
  1. ARSENIC [Suspect]
     Active Substance: ARSENIC
     Indication: Acute promyelocytic leukaemia
     Dosage: FREQUENCY : DAILY;?
     Route: 042
     Dates: start: 20231224

REACTIONS (4)
  - Pyrexia [None]
  - Hypotension [None]
  - Tachycardia [None]
  - Infusion related reaction [None]

NARRATIVE: CASE EVENT DATE: 20231231
